FAERS Safety Report 7266111-0 (Version None)
Quarter: 2011Q1

REPORT INFORMATION
  Report Type: 
  Country: None (occurrence: None)
  Receive Date: 20110131
  Receipt Date: 20110120
  Transmission Date: 20110831
  Serious: Yes (Other)
  Sender: FDA-Public Use
  Company Number: US-BRISTOL-MYERS SQUIBB COMPANY-15503592

PATIENT
  Age: 46 Year
  Sex: Female

DRUGS (7)
  1. REVLIMID [Suspect]
     Indication: MULTIPLE MYELOMA
     Dosage: CAPS; 17AUG09 TO 29DEC09(134D) 21SEP2010 TO UNK(15MG);LAST DOSE:02DEC2010
     Route: 048
     Dates: start: 20090817
  2. DEXAMETHASONE [Suspect]
     Indication: MULTIPLE MYELOMA
     Dosage: 17AUG09 TO 29DEC09(134D) 21SEP2010 TO UNK
     Route: 065
     Dates: start: 20090817
  3. PLATINOL [Suspect]
     Dates: start: 20100108
  4. VELCADE [Suspect]
     Indication: MULTIPLE MYELOMA
     Route: 065
     Dates: start: 20090817, end: 20091229
  5. ETOPOSIDE [Suspect]
     Dates: start: 20100108
  6. CYTOXAN [Suspect]
     Indication: MULTIPLE MYELOMA
     Route: 065
     Dates: start: 20100921
  7. ADRIAMYCIN PFS [Suspect]
     Dates: start: 20100108

REACTIONS (3)
  - PANCYTOPENIA [None]
  - CARDIOMYOPATHY [None]
  - PLASMACYTOMA [None]
